FAERS Safety Report 10909943 (Version 2)
Quarter: 2015Q2

REPORT INFORMATION
  Report Type: Spontaneous
  Country: BR (occurrence: BR)
  Receive Date: 20150312
  Receipt Date: 20150527
  Transmission Date: 20150821
  Serious: Yes (Death, Life-Threatening, Hospitalization, Disabling)
  Sender: FDA-Public Use
  Company Number: BR-B.I. PHARMACEUTICALS,INC./RIDGEFIELD-2015-BI-12364BR

PATIENT
  Age: 97 Year
  Sex: Male

DRUGS (2)
  1. SECOTEX [Suspect]
     Active Substance: TAMSULOSIN
     Indication: PROSTATIC DISORDER
     Dosage: 1 ANZ
     Route: 048
     Dates: start: 201401, end: 201406
  2. DECAZIL [Concomitant]
     Indication: HYPERTENSION
     Route: 048

REACTIONS (5)
  - Malaise [Recovered/Resolved]
  - Bedridden [Not Recovered/Not Resolved]
  - Decubitus ulcer [Not Recovered/Not Resolved]
  - Death [Fatal]
  - Abasia [Not Recovered/Not Resolved]

NARRATIVE: CASE EVENT DATE: 201411
